FAERS Safety Report 7549458-X (Version None)
Quarter: 2011Q2

REPORT INFORMATION
  Report Type: 
  Country: None (occurrence: None)
  Receive Date: 20110615
  Receipt Date: 20050118
  Transmission Date: 20111010
  Serious: Yes (Hospitalization, Other)
  Sender: FDA-Public Use
  Company Number: PHFR2004GB04456

PATIENT
  Sex: Female

DRUGS (2)
  1. CLOZAPINE [Suspect]
     Indication: SCHIZOPHRENIA
     Dosage: UNK, UNK
     Dates: start: 20041029, end: 20041231
  2. DIAZEPAM [Concomitant]
     Dosage: 5 MG, BID

REACTIONS (2)
  - MASS [None]
  - OVARIAN CANCER [None]
